FAERS Safety Report 17101040 (Version 1)
Quarter: 2019Q4

REPORT INFORMATION
  Report Type: Spontaneous
  Country: SE (occurrence: SE)
  Receive Date: 20191202
  Receipt Date: 20191202
  Transmission Date: 20200122
  Serious: Yes (Hospitalization)
  Sender: FDA-Public Use
  Company Number: SE-PFIZER INC-2019512980

PATIENT
  Age: 21 Year
  Sex: Female

DRUGS (6)
  1. LERGIGAN (PROMETHAZINE HYDROCHLORIDE) [Suspect]
     Active Substance: PROMETHAZINE HYDROCHLORIDE
     Dosage: 400 MG, UNK
     Route: 048
     Dates: start: 20180604, end: 20180604
  2. ABILIFY [Suspect]
     Active Substance: ARIPIPRAZOLE
     Dosage: 45 MG, UNK
     Route: 048
     Dates: start: 20180604, end: 20180604
  3. PROPAVAN [Suspect]
     Active Substance: PROPIOMAZINE
     Dosage: 50 MG, UNK
     Route: 048
     Dates: start: 20180604, end: 20180604
  4. VENLAFAXINE HCL [Suspect]
     Active Substance: VENLAFAXINE HYDROCHLORIDE
     Dosage: 300 MG, UNK
     Route: 048
     Dates: start: 20180604, end: 20180604
  5. QUETIAPINE. [Suspect]
     Active Substance: QUETIAPINE
     Dosage: 200 MG, UNK
     Route: 048
     Dates: start: 20180604, end: 20180604
  6. ALIMEMAZINE [Suspect]
     Active Substance: TRIMEPRAZINE
     Dosage: 40 MG, UNK
     Route: 048
     Dates: start: 20180604, end: 20180604

REACTIONS (6)
  - Fatigue [Unknown]
  - Nausea [Unknown]
  - Pruritus [Unknown]
  - Tachycardia [Unknown]
  - Intentional overdose [Unknown]
  - Intentional self-injury [Unknown]

NARRATIVE: CASE EVENT DATE: 20180604
